FAERS Safety Report 7291396-4 (Version None)
Quarter: 2011Q1

REPORT INFORMATION
  Report Type: 
  Country: None (occurrence: None)
  Receive Date: 20110214
  Receipt Date: 20110203
  Transmission Date: 20110831
  Serious: Yes (Hospitalization)
  Sender: FDA-Public Use
  Company Number: B0698440A

PATIENT
  Sex: Male
  Weight: 68 kg

DRUGS (21)
  1. NOREPINEPHRINE BITARTRATE [Concomitant]
     Dosage: 6MG PER DAY
     Route: 042
     Dates: start: 20090622, end: 20090623
  2. KYTRIL [Concomitant]
     Dosage: 3MG PER DAY
     Route: 042
     Dates: start: 20090608, end: 20090609
  3. OZEX [Concomitant]
     Dosage: 450MG PER DAY
     Route: 048
     Dates: start: 20090530, end: 20090615
  4. DIFLUCAN [Concomitant]
     Dosage: 200MG PER DAY
     Route: 048
     Dates: start: 20090530, end: 20090629
  5. ALKERAN [Suspect]
     Indication: STEM CELL TRANSPLANT
     Dosage: 185MG PER DAY
     Route: 042
     Dates: start: 20090608, end: 20090609
  6. SOLU-CORTEF [Concomitant]
     Dosage: 200MG PER DAY
     Dates: start: 20090618, end: 20090624
  7. POLARAMINE [Concomitant]
     Dosage: 5MG PER DAY
     Dates: start: 20090610, end: 20090610
  8. UNKNOWN MEDICATION [Concomitant]
     Dosage: 2000ML PER DAY
     Route: 042
     Dates: start: 20090617, end: 20090728
  9. GLYCEOL [Concomitant]
     Dosage: 200ML PER DAY
     Route: 042
     Dates: start: 20090623, end: 20090624
  10. VERAPAMIL HCL [Concomitant]
     Dosage: 5MG PER DAY
     Route: 042
     Dates: start: 20090618, end: 20090619
  11. ATARAX [Concomitant]
     Route: 042
     Dates: start: 20090620, end: 20090624
  12. GLYCEOL [Concomitant]
     Dosage: 300ML PER DAY
     Route: 042
     Dates: start: 20090620, end: 20090622
  13. GLYCEOL [Concomitant]
     Dosage: 100ML PER DAY
     Route: 042
     Dates: start: 20090625, end: 20090701
  14. BAKTAR [Concomitant]
     Dosage: 8IUAX PER DAY
     Route: 048
     Dates: start: 20090630
  15. DIGOSIN [Concomitant]
     Dosage: .25MG PER DAY
     Route: 042
     Dates: start: 20090618, end: 20090619
  16. NOREPINEPHRINE BITARTRATE [Concomitant]
     Dosage: 8MG PER DAY
     Route: 042
     Dates: start: 20090620, end: 20090621
  17. ZOVIRAX [Concomitant]
     Dosage: 1000MG PER DAY
     Route: 048
     Dates: start: 20090530, end: 20090629
  18. LENDORMIN [Concomitant]
     Dosage: .25MG PER DAY
     Route: 048
     Dates: start: 20090508
  19. GRAN [Concomitant]
     Dates: start: 20090617, end: 20090624
  20. SOLU-CORTEF [Concomitant]
     Dosage: 100MG PER DAY
     Dates: start: 20090610, end: 20090610
  21. GLYCEOL [Concomitant]
     Dosage: 300ML PER DAY
     Route: 042
     Dates: start: 20090702, end: 20090717

REACTIONS (3)
  - SEPSIS [None]
  - ABSCESS [None]
  - ENCEPHALITIS [None]
